FAERS Safety Report 21094265 (Version 1)
Quarter: 2022Q3

REPORT INFORMATION
  Report Type: Spontaneous
  Country: GB (occurrence: GB)
  Receive Date: 20220718
  Receipt Date: 20220718
  Transmission Date: 20221027
  Serious: Yes (Other)
  Sender: FDA-Public Use
  Company Number: GB-MHRA-MED-202207111426182100-LRVYG

PATIENT
  Age: 72 Year
  Sex: Male

DRUGS (14)
  1. BEVACIZUMAB [Suspect]
     Active Substance: BEVACIZUMAB
     Indication: Colon cancer
     Dosage: 415MG
     Route: 042
  2. CHLORPHENIRAMINE [Concomitant]
     Active Substance: CHLORPHENIRAMINE
     Dosage: UNK
  3. DEXAMETHASONE [Concomitant]
     Active Substance: DEXAMETHASONE
     Dosage: UNK
  4. BENZYDAMINE HYDROCHLORIDE [Concomitant]
     Active Substance: BENZYDAMINE HYDROCHLORIDE
     Dosage: UNK
  5. FLUOROURACIL [Concomitant]
     Active Substance: FLUOROURACIL
     Dosage: UNK
  6. FOSNETUPITANT [Concomitant]
     Indication: Colon cancer
     Dosage: UNK
  7. NETUPITANT [Concomitant]
     Active Substance: NETUPITANT
     Indication: Colon cancer
     Dosage: UNK
  8. PALONOSETRON [Concomitant]
     Active Substance: PALONOSETRON
     Indication: Colon cancer
     Dosage: UNK
  9. LEVOLEUCOVORIN [Concomitant]
     Active Substance: LEVOLEUCOVORIN
     Dosage: UNK
  10. LOPERAMIDE [Concomitant]
     Active Substance: LOPERAMIDE
     Dosage: UNK
  11. METOCLOPRAMIDE [Concomitant]
     Active Substance: METOCLOPRAMIDE
     Dosage: UNK
  12. ONDANSETRON [Concomitant]
     Active Substance: ONDANSETRON
     Dosage: UNK
  13. OXALIPLATIN [Concomitant]
     Active Substance: OXALIPLATIN
     Dosage: UNK
  14. PEGFILGRASTIM [Concomitant]
     Active Substance: PEGFILGRASTIM
     Dosage: UNK

REACTIONS (3)
  - Neuropathy peripheral [Recovered/Resolved]
  - Dysphagia [Recovered/Resolved]
  - Fatigue [Not Recovered/Not Resolved]

NARRATIVE: CASE EVENT DATE: 20220708
